FAERS Safety Report 16243415 (Version 2)
Quarter: 2019Q2

REPORT INFORMATION
  Report Type: Spontaneous
  Country: DE (occurrence: DE)
  Receive Date: 20190426
  Receipt Date: 20190521
  Transmission Date: 20190711
  Serious: Yes (Other)
  Sender: FDA-Public Use
  Company Number: DE-ROCHE-2308337

PATIENT
  Age: 42 Year
  Sex: Male

DRUGS (3)
  1. RITUXIMAB. [Suspect]
     Active Substance: RITUXIMAB
     Indication: B-CELL PROLYMPHOCYTIC LEUKAEMIA
     Route: 042
  2. VENETOCLAX. [Concomitant]
     Active Substance: VENETOCLAX
     Indication: B-CELL PROLYMPHOCYTIC LEUKAEMIA
  3. RITUXIMAB. [Suspect]
     Active Substance: RITUXIMAB
     Dosage: FRACTIONATING RITUXIMAB TO SMALL ABSOLUTE DOSES
     Route: 042

REACTIONS (6)
  - Off label use [Unknown]
  - Pyrexia [Unknown]
  - Hypotonia [Unknown]
  - Tumour lysis syndrome [Unknown]
  - Tachycardia [Unknown]
  - Intentional product use issue [Unknown]
